FAERS Safety Report 11145791 (Version 1)
Quarter: 2015Q2

REPORT INFORMATION
  Report Type: Spontaneous
  Country: CN (occurrence: None)
  Receive Date: 20150526
  Receipt Date: 20150526
  Transmission Date: 20150821
  Serious: Yes (Hospitalization, Other)
  Sender: FDA-Public Use
  Company Number: FK201502354

PATIENT
  Age: 63 Year
  Sex: Female

DRUGS (4)
  1. PIRACETAM (PIRACETAM) (PIRACETAM) [Suspect]
     Active Substance: PIRACETAM
     Indication: PRODUCT USED FOR UNKNOWN INDICATION
     Route: 041
  2. CARTHAMUS TINCTORIUS FLOWER BUD\CORYDALIS AMBIGUA TUBER\LONICERA CAPRIFOLIUM FLOWER\WITCH HAZEL [Suspect]
     Active Substance: CARTHAMUS TINCTORIUS FLOWER BUD\CORYDALIS AMBIGUA TUBER\LONICERA CAPRIFOLIUM FLOWER\WITCH HAZEL
     Indication: PRODUCT USED FOR UNKNOWN INDICATION
     Route: 041
  3. MAILUONING (HERBAL EXTRACT NOS) (HERBAL EXTRACT NOS) [Suspect]
     Active Substance: HERBALS
     Indication: PRODUCT USED FOR UNKNOWN INDICATION
     Route: 041
  4. SODIUM CHLORIDE 0.9% [Suspect]
     Active Substance: SODIUM CHLORIDE
     Indication: PRODUCT USED FOR UNKNOWN INDICATION
     Route: 041

REACTIONS (3)
  - Eyelid oedema [None]
  - Dyspnoea [None]
  - Overdose [None]
